FAERS Safety Report 6463117-6 (Version None)
Quarter: 2009Q4

REPORT INFORMATION
  Report Type: 
  Country: None (occurrence: None)
  Receive Date: 20091130
  Receipt Date: 20091117
  Transmission Date: 20100525
  Serious: Yes (Other)
  Sender: FDA-Public Use
  Company Number: US-ELI_LILLY_AND_COMPANY-US200911004490

PATIENT
  Sex: Female

DRUGS (5)
  1. PROZAC [Suspect]
     Indication: ANXIETY
     Dosage: UNK, UNKNOWN
     Route: 065
     Dates: start: 20060101
  2. PROZAC [Suspect]
     Dosage: 30 MG, DAILY (1/D)
     Route: 065
  3. PROZAC [Suspect]
     Dosage: 20 MG, DAILY (1/D)
     Route: 065
  4. PROZAC [Suspect]
     Dosage: 10 MG, DAILY (1/D)
     Route: 065
     Dates: end: 20091001
  5. IMITREX [Concomitant]
     Indication: MIGRAINE
     Dosage: UNK, UNKNOWN
     Route: 065

REACTIONS (6)
  - CHILLS [None]
  - GLAUCOMA [None]
  - HEADACHE [None]
  - MIGRAINE [None]
  - NAUSEA [None]
  - WITHDRAWAL SYNDROME [None]
